FAERS Safety Report 8194209-1 (Version None)
Quarter: 2012Q1

REPORT INFORMATION
  Report Type: 
  Country: None (occurrence: None)
  Receive Date: 20120308
  Receipt Date: 20120301
  Transmission Date: 20120608
  Serious: Yes (Hospitalization, Other)
  Sender: FDA-Public Use
  Company Number: US-ASTRAZENECA-2011SE74330

PATIENT
  Age: 60 Year
  Sex: Female

DRUGS (31)
  1. XANAX [Concomitant]
     Indication: ANXIETY
     Dosage: 2.25 MG THREE TIMES A DAY, AS REQUIREDORA
     Route: 048
  2. SODIUM CHLORIDE [Concomitant]
     Route: 048
  3. ALBUTEROL [Concomitant]
     Indication: DYSPNOEA
     Dosage: AS REQUIRED
  4. ALBUTEROL [Concomitant]
     Indication: WHEEZING
     Dosage: AS REQUIRED
  5. LISINOPRIL [Concomitant]
     Route: 048
  6. ASPIRIN [Concomitant]
     Route: 048
  7. XANAX [Concomitant]
     Dosage: 0.25 MG, PRN
  8. HEPARIN [Concomitant]
     Dosage: 5000 UNITS EVERY EIGHT HOURS
     Route: 058
  9. LOVENOX [Concomitant]
  10. XANAX [Concomitant]
     Indication: SLEEP DISORDER
     Dosage: 2.25 MG THREE TIMES A DAY, AS REQUIREDORA
     Route: 048
  11. XANAX [Concomitant]
     Dosage: 0.25 MG, PRN
  12. TYLENOL [Concomitant]
     Indication: PYREXIA
     Dosage: 650 MG EVERY FOUR HOURS, AS REQUIRED
     Route: 048
  13. FLORINEF [Concomitant]
     Route: 048
  14. CRESTOR [Suspect]
     Route: 048
  15. ZOFRAN [Concomitant]
     Indication: NAUSEA
     Dosage: EVERY 4 HOURS AS NEEDED
     Route: 048
  16. PROAMATINE [Concomitant]
     Dosage: 10 MG AT 7 AM AND 2 PM
     Route: 048
  17. CRESTOR [Suspect]
     Route: 048
  18. AMBIEN [Concomitant]
     Indication: SLEEP DISORDER
     Dosage: 5 MG NIGHTLY AS REQUIRED
  19. AMLODIPINE [Concomitant]
     Route: 048
  20. DSS [Concomitant]
     Dosage: 100 PO BID
     Route: 048
  21. TYLENOL [Concomitant]
     Indication: PAIN
     Dosage: 650 MG EVERY FOUR HOURS, AS REQUIRED
     Route: 048
  22. NEURONTIN [Concomitant]
  23. COUMADIN [Concomitant]
  24. CALCIUM CARBONATE [Concomitant]
     Indication: GASTROOESOPHAGEAL REFLUX DISEASE
  25. DULCOLAX [Concomitant]
     Dosage: AS REQUIRED
  26. METOPROLOL SUCCINATE [Concomitant]
     Route: 048
  27. PERCOCET [Concomitant]
     Indication: PAIN
     Dosage: 5/325 EVERY 6 HOURS AS NEEDED
     Route: 048
  28. DULCOLAX [Concomitant]
     Indication: CONSTIPATION
     Route: 048
  29. LEXAPRO [Concomitant]
     Indication: ANXIETY
     Route: 048
  30. COLACE [Concomitant]
     Route: 048
  31. POTASSIUM EXTENDED RELEASE [Concomitant]
     Indication: HYPOKALAEMIA

REACTIONS (19)
  - ANXIETY [None]
  - HYPERTENSION [None]
  - HAEMORRHAGIC TRANSFORMATION STROKE [None]
  - BLOOD POTASSIUM ABNORMAL [None]
  - CEREBRAL ARTERY THROMBOSIS [None]
  - THROMBOCYTOSIS [None]
  - URINARY TRACT INFECTION [None]
  - INSOMNIA [None]
  - ASTHMA EXERCISE INDUCED [None]
  - PYREXIA [None]
  - ACTIVITIES OF DAILY LIVING IMPAIRED [None]
  - BLOOD ALKALINE PHOSPHATASE ABNORMAL [None]
  - BLOOD ELECTROLYTES ABNORMAL [None]
  - BRONCHIAL HYPERREACTIVITY [None]
  - DEPRESSION [None]
  - BASAL GANGLIA HAEMORRHAGE [None]
  - DYSLIPIDAEMIA [None]
  - COGNITIVE DISORDER [None]
  - HEMIPARESIS [None]
